FAERS Safety Report 8016450-0 (Version None)
Quarter: 2011Q4

REPORT INFORMATION
  Report Type: 
  Country: None (occurrence: None)
  Receive Date: 20111230
  Receipt Date: 20111221
  Transmission Date: 20120403
  Serious: Yes (Death, Hospitalization, Other)
  Sender: FDA-Public Use
  Company Number: JP-ABBOTT-11P-087-0883494-00

PATIENT
  Sex: Female
  Weight: 65 kg

DRUGS (6)
  1. METHOTREXATE [Suspect]
     Indication: RHEUMATOID ARTHRITIS
     Route: 048
     Dates: start: 20100506
  2. LOXOPROFEN SODIUM HYDRATE [Concomitant]
     Indication: RHEUMATOID ARTHRITIS
     Dosage: 120MG DAILY: 60MG, 2 IN 1 DAY
     Route: 048
     Dates: start: 20100506
  3. HUMIRA [Suspect]
     Indication: RHEUMATOID ARTHRITIS
     Route: 058
     Dates: start: 20111102, end: 20111116
  4. METHOTREXATE [Suspect]
     Dosage: DOSE INCREASED
  5. TEPRENONE [Concomitant]
     Indication: PROPHYLAXIS AGAINST GASTROINTESTINAL ULCER
     Dosage: 100MG DAILY, 50MG: 2 IN 1 DAY
     Route: 048
     Dates: start: 20100506
  6. METHOTREXATE [Suspect]
     Dates: start: 20100506

REACTIONS (11)
  - BRONCHOPNEUMONIA [None]
  - BACTERAEMIA [None]
  - SPLENOMEGALY [None]
  - PANCYTOPENIA [None]
  - BLOOD PRESSURE DECREASED [None]
  - PNEUMOCYSTIS JIROVECI PNEUMONIA [None]
  - RESPIRATORY DISORDER [None]
  - LIVER DISORDER [None]
  - LYMPHOMA [None]
  - URINARY TRACT INFECTION [None]
  - HEPATIC STEATOSIS [None]
